FAERS Safety Report 13752973 (Version 1)
Quarter: 2017Q3

REPORT INFORMATION
  Report Type: Spontaneous
  Country: EG (occurrence: EG)
  Receive Date: 20170714
  Receipt Date: 20170714
  Transmission Date: 20171127
  Serious: Yes (Other)
  Sender: FDA-Public Use
  Company Number: EG-ROCHE-1963472

PATIENT
  Sex: Female

DRUGS (3)
  1. PERJETA [Concomitant]
     Active Substance: PERTUZUMAB
     Route: 065
  2. HERCEPTIN [Suspect]
     Active Substance: TRASTUZUMAB
     Indication: HER-2 POSITIVE BREAST CANCER
     Route: 042
     Dates: start: 201508, end: 201608
  3. TAXOL [Concomitant]
     Active Substance: PACLITAXEL
     Indication: BREAST CANCER
     Route: 065
     Dates: start: 201508, end: 201608

REACTIONS (1)
  - Disease recurrence [Unknown]
